FAERS Safety Report 9139449 (Version 2)
Quarter: 2013Q2

REPORT INFORMATION
  Report Type: Spontaneous
  Country: GB (occurrence: GB)
  Receive Date: 20130305
  Receipt Date: 20130417
  Transmission Date: 20140414
  Serious: Yes (Other)
  Sender: FDA-Public Use
  Company Number: PHFR2013GB000513

PATIENT
  Age: 45 Year
  Sex: Female

DRUGS (1)
  1. CLOZARIL [Suspect]
     Dosage: UNK
     Route: 048
     Dates: start: 20020823

REACTIONS (4)
  - Lung cancer metastatic [Not Recovered/Not Resolved]
  - Metastases to liver [Unknown]
  - Metastases to bone [Unknown]
  - Haemoglobin decreased [Not Recovered/Not Resolved]
